FAERS Safety Report 17141175 (Version 5)
Quarter: 2023Q4

REPORT INFORMATION
  Report Type: Spontaneous
  Country: US (occurrence: US)
  Receive Date: 20191211
  Receipt Date: 20231219
  Transmission Date: 20240110
  Serious: No
  Sender: FDA-Public Use
  Company Number: US-PFIZER INC-2019531565

PATIENT
  Age: 77 Year
  Sex: Male
  Weight: 79.365 kg

DRUGS (2)
  1. VORICONAZOLE [Suspect]
     Active Substance: VORICONAZOLE
     Indication: Bronchopulmonary aspergillosis
     Dosage: 300 MG, 2X/DAY
  2. VORICONAZOLE [Suspect]
     Active Substance: VORICONAZOLE
     Indication: Mycobacterium avium complex infection

REACTIONS (4)
  - Drug ineffective [Unknown]
  - Rash [Not Recovered/Not Resolved]
  - Photosensitivity reaction [Not Recovered/Not Resolved]
  - Urticaria [Not Recovered/Not Resolved]
